FAERS Safety Report 8922677 (Version 2)
Quarter: 2012Q4

REPORT INFORMATION
  Report Type: 
  Country: IN (occurrence: IN)
  Receive Date: 20121123
  Receipt Date: 20121231
  Transmission Date: 20130627
  Serious: Yes (Hospitalization)
  Sender: FDA-Public Use
  Company Number: PHHY2012IN105129

PATIENT
  Sex: Male

DRUGS (3)
  1. GLIVEC [Suspect]
     Indication: CHRONIC MYELOID LEUKAEMIA
     Dosage: 400 mg, QD
  2. NILOTINIB [Suspect]
     Dosage: UNK UKN, UNK
  3. NILOTINIB [Suspect]
     Dosage: UNK UKN, UNK
     Dates: start: 20121124

REACTIONS (1)
  - Dengue fever [Recovered/Resolved]
